FAERS Safety Report 16962993 (Version 1)
Quarter: 2019Q4

REPORT INFORMATION
  Report Type: Spontaneous
  Country: CN (occurrence: CN)
  Receive Date: 20191025
  Receipt Date: 20191025
  Transmission Date: 20200122
  Serious: Yes (Life-Threatening, Hospitalization, Other)
  Sender: FDA-Public Use
  Company Number: CN-GLAXOSMITHKLINE-CN2019GSK191037

PATIENT
  Age: 2 Month
  Sex: Male
  Weight: 5 kg

DRUGS (3)
  1. PROPAFENONE. [Suspect]
     Active Substance: PROPAFENONE
     Indication: SUPRAVENTRICULAR TACHYCARDIA
     Dosage: UNK
  2. DIGOXIN. [Suspect]
     Active Substance: DIGOXIN
     Indication: SUPRAVENTRICULAR TACHYCARDIA
     Dosage: UNK
     Route: 048
  3. AMIODARONE [Suspect]
     Active Substance: AMIODARONE
     Indication: SUPRAVENTRICULAR TACHYCARDIA
     Dosage: UNK
     Route: 042

REACTIONS (1)
  - Drug ineffective [Unknown]
